FAERS Safety Report 14895305 (Version 1)
Quarter: 2018Q2

REPORT INFORMATION
  Report Type: Spontaneous
  Country: US (occurrence: US)
  Receive Date: 20180515
  Receipt Date: 20180515
  Transmission Date: 20180711
  Serious: No
  Sender: FDA-Public Use
  Company Number: US-ASTRAZENECA-2018SE56286

PATIENT
  Age: 62 Year
  Sex: Male
  Weight: 98.9 kg

DRUGS (2)
  1. METFORMIN [Suspect]
     Active Substance: METFORMIN HYDROCHLORIDE
     Route: 065
  2. FORXIGA [Suspect]
     Active Substance: DAPAGLIFLOZIN
     Route: 048

REACTIONS (9)
  - Nerve injury [Unknown]
  - Loss of consciousness [Unknown]
  - Insurance issue [Unknown]
  - Blood glucose decreased [Unknown]
  - Malaise [Unknown]
  - Fall [Unknown]
  - Abdominal discomfort [Unknown]
  - Neuropathy peripheral [Unknown]
  - Fatigue [Unknown]
